FAERS Safety Report 13464689 (Version 1)
Quarter: 2017Q2

REPORT INFORMATION
  Report Type: Spontaneous
  Country: US (occurrence: US)
  Receive Date: 20170420
  Receipt Date: 20170420
  Transmission Date: 20170830
  Serious: Yes (Other)
  Sender: FDA-Public Use
  Company Number: US-ROCHE-697099

PATIENT
  Age: 31 Year
  Sex: Female
  Weight: 52.2 kg

DRUGS (6)
  1. ACCUTANE [Suspect]
     Active Substance: ISOTRETINOIN
     Route: 048
     Dates: start: 20031110, end: 20040112
  2. ACCUTANE [Suspect]
     Active Substance: ISOTRETINOIN
     Dosage: DOSE DECREASED
     Route: 048
     Dates: start: 20040112, end: 20040830
  3. MINOCYCLINE [Concomitant]
     Active Substance: MINOCYCLINE\MINOCYCLINE HYDROCHLORIDE
     Indication: ACNE
     Route: 065
  4. ELMIRON [Concomitant]
     Active Substance: PENTOSAN POLYSULFATE SODIUM
     Indication: CYSTITIS INTERSTITIAL
     Route: 065
  5. ACCUTANE [Suspect]
     Active Substance: ISOTRETINOIN
     Indication: ACNE
     Route: 048
     Dates: start: 20010529, end: 20011102
  6. ACCUTANE [Suspect]
     Active Substance: ISOTRETINOIN
     Route: 048
     Dates: start: 20020103, end: 20020603

REACTIONS (10)
  - Hernia [Unknown]
  - Dry skin [Recovered/Resolved]
  - Liver function test increased [Recovered/Resolved]
  - Colitis ulcerative [Unknown]
  - Gastrointestinal disorder [Unknown]
  - Acne [Recovered/Resolved]
  - Inflammatory bowel disease [Unknown]
  - Nasal dryness [Recovered/Resolved]
  - Blood cholesterol increased [Recovered/Resolved]
  - Depression [Unknown]

NARRATIVE: CASE EVENT DATE: 20020128
